FAERS Safety Report 5338647-0 (Version None)
Quarter: 2007Q2

REPORT INFORMATION
  Report Type: 
  Country: None (occurrence: None)
  Receive Date: 20070322
  Receipt Date: 20060516
  Transmission Date: 20071010
  Serious: Yes (Other)
  Sender: FDA-Public Use
  Company Number: 200611158BCC

PATIENT
  Age: 73 Year
  Sex: Female
  Weight: 104.3273 kg

DRUGS (4)
  1. ALEVE (CAPLET) [Suspect]
     Indication: MYALGIA
     Dosage: 220 MG, ONCE, ORAL
     Route: 048
     Dates: start: 20060301
  2. LODINE [Concomitant]
  3. CRESTOR [Concomitant]
  4. ATACAND [Concomitant]

REACTIONS (5)
  - EYE SWELLING [None]
  - FLUSHING [None]
  - HYPERSENSITIVITY [None]
  - RASH PRURITIC [None]
  - SWELLING FACE [None]
